FAERS Safety Report 7206395-8 (Version None)
Quarter: 2011Q1

REPORT INFORMATION
  Report Type: 
  Country: None (occurrence: None)
  Receive Date: 20110103
  Receipt Date: 20110103
  Transmission Date: 20110831
  Serious: Yes (Hospitalization)
  Sender: FDA-Public Use
  Company Number: PHHO2007DE19184

PATIENT
  Sex: Female
  Weight: 62 kg

DRUGS (3)
  1. CERTICAN [Suspect]
     Dosage: 7.5 MG/DAY (CODE NOT BROKEN)
     Route: 048
     Dates: start: 20070924, end: 20071012
  2. CERTICAN [Suspect]
     Indication: CONGENITAL CYSTIC KIDNEY DISEASE
     Dosage: UNK
     Route: 048
     Dates: start: 20070816
  3. CERTICAN [Suspect]
     Dosage: CODE NOT BROKEN
     Route: 048
     Dates: start: 20071101

REACTIONS (8)
  - VIRAL INFECTION [None]
  - ABDOMINAL PAIN UPPER [None]
  - BLOOD CREATININE INCREASED [None]
  - RENAL CYST [None]
  - VOMITING [None]
  - HAEMORRHAGIC CYST [None]
  - CHOLECYSTITIS [None]
  - HYPOCHROMIC ANAEMIA [None]
